FAERS Safety Report 9994687 (Version 2)
Quarter: 2014Q1

REPORT INFORMATION
  Report Type: Report from Study
  Country: US (occurrence: US)
  Receive Date: 20140311
  Receipt Date: 20140311
  Transmission Date: 20141002
  Serious: Yes (Other)
  Sender: FDA-Public Use
  Company Number: US-ROCHE-1354396

PATIENT
  Sex: Female
  Weight: 66.28 kg

DRUGS (2)
  1. RITUXIMAB [Suspect]
     Indication: RHEUMATOID ARTHRITIS
     Dosage: Q 14DX2Q6MO
     Route: 042
     Dates: start: 2011
  2. CLONAZEPAM [Suspect]
     Indication: ANXIETY
     Route: 048

REACTIONS (2)
  - Cardiac stress test abnormal [Unknown]
  - Atrial fibrillation [Recovering/Resolving]
